FAERS Safety Report 6377384-0 (Version None)
Quarter: 2009Q3

REPORT INFORMATION
  Report Type: 
  Country: None (occurrence: None)
  Receive Date: 20090925
  Receipt Date: 20090917
  Transmission Date: 20100115
  Serious: Yes (Other)
  Sender: FDA-Public Use
  Company Number: US-WYE-H11063409

PATIENT
  Sex: Male
  Weight: 95.34 kg

DRUGS (8)
  1. PRISTIQ [Suspect]
     Route: 048
     Dates: start: 20090627, end: 20090701
  2. PRISTIQ [Suspect]
     Route: 048
     Dates: start: 20090701, end: 20090819
  3. PRISTIQ [Suspect]
     Route: 048
     Dates: start: 20090820, end: 20090801
  4. PRISTIQ [Suspect]
     Route: 048
     Dates: start: 20090801, end: 20090801
  5. PRISTIQ [Suspect]
     Route: 048
     Dates: start: 20090801
  6. AMBIEN [Concomitant]
  7. XANAX [Concomitant]
  8. ADDERALL 10 [Concomitant]

REACTIONS (3)
  - DRUG INEFFECTIVE [None]
  - MUSCLE ENZYME INCREASED [None]
  - MUSCULAR WEAKNESS [None]
